FAERS Safety Report 8556625-5 (Version None)
Quarter: 2012Q3

REPORT INFORMATION
  Report Type: 
  Country: None (occurrence: None)
  Receive Date: 20120801
  Receipt Date: 20120723
  Transmission Date: 20120928
  Serious: Yes (Hospitalization)
  Sender: FDA-Public Use
  Company Number: JP-BRISTOL-MYERS SQUIBB COMPANY-16741811

PATIENT
  Age: 66 Year
  Sex: Male
  Weight: 56 kg

DRUGS (11)
  1. AMARYL [Concomitant]
     Indication: DIABETES MELLITUS
     Dosage: TAB
     Dates: start: 20120216, end: 20120628
  2. SODIUM PICOSULFATE [Concomitant]
     Indication: CONSTIPATION PROPHYLAXIS
     Route: 048
     Dates: start: 20111216
  3. MYSER [Concomitant]
     Indication: RASH
     Dosage: 0.05%
     Dates: start: 20111221
  4. AZUNOL [Concomitant]
     Indication: STOMATITIS
     Dosage: GARGLE 4%
     Dates: start: 20111208
  5. SODIUM CHLORIDE [Concomitant]
     Indication: BLOOD SODIUM ABNORMAL
     Dates: start: 20120126
  6. CETUXIMAB [Suspect]
     Indication: GASTRIC CANCER
     Dosage: FORM: 5MG/ML.CYCLE 6 DAY22
     Route: 042
     Dates: start: 20111208, end: 20120621
  7. CISPLATIN [Suspect]
     Indication: GASTRIC CANCER
     Dosage: ON DAY 8 OF EACH CYCLE
     Route: 042
     Dates: start: 20111215
  8. TS-1 [Suspect]
     Indication: GASTRIC CANCER
     Dosage: CAPS
     Route: 048
     Dates: start: 20111208
  9. MINOCYCLINE HYDROCHLORIDE [Concomitant]
     Indication: RASH
     Dosage: CAPSULE
     Dates: start: 20120126
  10. HIRUDOID [Concomitant]
     Indication: DRY SKIN PROPHYLAXIS
     Dosage: 0.3%
     Dates: start: 20111208
  11. LIDOMEX [Concomitant]
     Indication: RASH
     Dates: start: 20120315

REACTIONS (2)
  - RENAL ARTERY THROMBOSIS [None]
  - DECREASED APPETITE [None]
